FAERS Safety Report 7056260-4 (Version None)
Quarter: 2010Q4

REPORT INFORMATION
  Report Type: 
  Country: None (occurrence: None)
  Receive Date: 20101021
  Receipt Date: 20101008
  Transmission Date: 20110411
  Serious: Yes (Hospitalization, Other)
  Sender: FDA-Public Use
  Company Number: US-ELI_LILLY_AND_COMPANY-US201010002413

PATIENT
  Age: 52 Year
  Sex: Female

DRUGS (8)
  1. CYMBALTA [Suspect]
     Indication: DEPRESSION
     Dosage: 60 MG, DAILY (1/D)
     Dates: start: 20080601
  2. CYMBALTA [Suspect]
     Dosage: 1 D/F, UNKNOWN
  3. PLAVIX [Concomitant]
  4. METFORMIN [Concomitant]
  5. ATASOL /00020001/ [Concomitant]
  6. COREG [Concomitant]
  7. NEURONTIN [Concomitant]
  8. LOVASTATIN [Concomitant]

REACTIONS (6)
  - CARPAL TUNNEL SYNDROME [None]
  - HEPATIC FAILURE [None]
  - HYSTERECTOMY [None]
  - RENAL FAILURE [None]
  - THROMBOTIC THROMBOCYTOPENIC PURPURA [None]
  - TRIGGER FINGER [None]
